FAERS Safety Report 24276450 (Version 1)
Quarter: 2024Q3

REPORT INFORMATION
  Report Type: Spontaneous
  Country: SE (occurrence: SE)
  Receive Date: 20240903
  Receipt Date: 20240903
  Transmission Date: 20241016
  Serious: Yes (Hospitalization)
  Sender: ASTELLAS
  Company Number: SE-ASTELLAS-2024-AER-001595

PATIENT
  Age: 59 Year
  Sex: Female

DRUGS (1)
  1. VEOZAH [Suspect]
     Active Substance: FEZOLINETANT
     Indication: Product used for unknown indication
     Route: 065
     Dates: start: 202407

REACTIONS (1)
  - Anaemia [Unknown]
